FAERS Safety Report 5885068-8 (Version None)
Quarter: 2008Q3

REPORT INFORMATION
  Report Type: 
  Country: None (occurrence: None)
  Receive Date: 20080916
  Receipt Date: 20080904
  Transmission Date: 20090109
  Serious: Yes (Hospitalization)
  Sender: FDA-Public Use
  Company Number: CH-WYE-H05931408

PATIENT
  Age: 42 Year
  Sex: Male

DRUGS (7)
  1. CORDARONE [Suspect]
     Dosage: 200 MG TABLET FREQUENCY NOT PROVIDED
     Route: 048
     Dates: start: 20080813
  2. KLACID [Interacting]
     Dosage: NOT PROVIDED
     Dates: start: 20080813
  3. AMOXICILLIN + CLAVULANATE POTASSIUM [Concomitant]
     Dosage: NOT PROVIDED
     Dates: start: 20080813
  4. HEPARIN [Concomitant]
     Dosage: NOT PROVIDED
     Route: 041
     Dates: start: 20080813
  5. PANTOZOL [Concomitant]
  6. METHADONE HCL [Interacting]
     Dosage: NOT PROVIDED
     Route: 048
     Dates: end: 20080813
  7. INSULIN [Concomitant]
     Dosage: NOT PROVIDED
     Route: 058

REACTIONS (2)
  - DRUG INTERACTION [None]
  - TORSADE DE POINTES [None]
